FAERS Safety Report 7412817-X (Version None)
Quarter: 2011Q2

REPORT INFORMATION
  Report Type: 
  Country: None (occurrence: None)
  Receive Date: 20110413
  Receipt Date: 20110405
  Transmission Date: 20111010
  Serious: Yes (Other)
  Sender: FDA-Public Use
  Company Number: B0710679A

PATIENT
  Sex: Male

DRUGS (3)
  1. PIPERACILLINE [Concomitant]
     Indication: SEPTIC SHOCK
     Dates: start: 20110201, end: 20110301
  2. FOSFOMYCINE [Concomitant]
     Indication: SEPTIC SHOCK
     Dates: start: 20110308, end: 20110309
  3. FORTUM [Suspect]
     Indication: SEPTIC SHOCK
     Route: 042
     Dates: start: 20110308, end: 20110310

REACTIONS (1)
  - ACUTE GENERALISED EXANTHEMATOUS PUSTULOSIS [None]
